FAERS Safety Report 6548641-X (Version None)
Quarter: 2010Q1

REPORT INFORMATION
  Report Type: 
  Country: None (occurrence: None)
  Receive Date: 20100124
  Receipt Date: 20091008
  Transmission Date: 20100710
  Serious: No
  Sender: FDA-Public Use
  Company Number: US-ALLERGAN-0913279US

PATIENT
  Age: 66 Year
  Sex: Female

DRUGS (1)
  1. RESTASIS [Suspect]
     Indication: DRY EYE
     Dosage: UNK
     Route: 047

REACTIONS (3)
  - EYE DISORDER [None]
  - SUPERFICIAL INJURY OF EYE [None]
  - SUTURE RUPTURE [None]
